FAERS Safety Report 24907282 (Version 1)
Quarter: 2025Q1

REPORT INFORMATION
  Report Type: Spontaneous
  Country: JP (occurrence: JP)
  Receive Date: 20250130
  Receipt Date: 20250130
  Transmission Date: 20250408
  Serious: Yes (Other)
  Sender: INSUD PHARMA
  Company Number: JP-INSUD PHARMA-2501JP00509

PATIENT

DRUGS (2)
  1. BETAMETHASONE [Suspect]
     Active Substance: BETAMETHASONE
     Indication: Blindness unilateral
     Dosage: 1.5-3.0 MG/DAY
     Route: 048
  2. METHYLPREDNISOLONE [Suspect]
     Active Substance: METHYLPREDNISOLONE
     Indication: Orbital apex syndrome
     Dosage: 1000 MG/DAY PULSE THERAPY
     Route: 065

REACTIONS (7)
  - Sinusitis aspergillus [Recovered/Resolved with Sequelae]
  - Condition aggravated [Recovered/Resolved]
  - Diplopia [Unknown]
  - Eyelid ptosis [Recovered/Resolved]
  - Headache [Unknown]
  - Facial pain [Recovered/Resolved]
  - Eye movement disorder [Recovered/Resolved]
